FAERS Safety Report 7149636-8 (Version None)
Quarter: 2010Q4

REPORT INFORMATION
  Report Type: 
  Country: None (occurrence: None)
  Receive Date: 20101209
  Receipt Date: 20101206
  Transmission Date: 20110411
  Serious: Yes (Hospitalization, Other)
  Sender: FDA-Public Use
  Company Number: US-RB-014371-10

PATIENT
  Sex: Male

DRUGS (7)
  1. SUBOXONE [Suspect]
     Indication: DRUG DEPENDENCE
     Route: 060
     Dates: start: 20100101, end: 20100601
  2. SUBOXONE [Suspect]
     Indication: PAIN
     Route: 060
     Dates: start: 20100601, end: 20100804
  3. ATIVAN [Suspect]
     Indication: ANXIETY
     Route: 048
     Dates: end: 20100801
  4. KLONOPIN [Suspect]
     Indication: ANXIETY
     Dosage: UNKNOWN DOSING DETAILS
     Route: 048
     Dates: end: 20100801
  5. TRILEPTAL [Suspect]
     Indication: DEPRESSION
     Dosage: UNKNOWN DOSING DETAILS
     Route: 048
     Dates: start: 20100101, end: 20100801
  6. TRILEPTAL [Suspect]
     Dosage: UNKNOWN DOSING DETAILS
     Route: 048
     Dates: start: 20100101, end: 20100801
  7. WARFARIN SODIUM [Concomitant]
     Indication: HEART VALVE REPLACEMENT
     Dosage: UNKNOWN DOSING DETAILS
     Route: 065
     Dates: start: 19800101

REACTIONS (11)
  - ANXIETY [None]
  - DIZZINESS [None]
  - DRUG WITHDRAWAL SYNDROME [None]
  - FALL [None]
  - HYPOAESTHESIA [None]
  - LOSS OF CONSCIOUSNESS [None]
  - MEMORY IMPAIRMENT [None]
  - MUSCULAR WEAKNESS [None]
  - OEDEMA PERIPHERAL [None]
  - OFF LABEL USE [None]
  - PSYCHOTIC DISORDER [None]
